FAERS Safety Report 5474901-X (Version None)
Quarter: 2007Q3

REPORT INFORMATION
  Report Type: 
  Country: None (occurrence: None)
  Receive Date: 20070831
  Receipt Date: 20070404
  Transmission Date: 20080115
  Serious: No
  Sender: FDA-Public Use
  Company Number: 239462

PATIENT
  Age: 74 Year
  Sex: Female

DRUGS (1)
  1. LUCENTIS [Suspect]
     Indication: MACULAR DEGENERATION
     Dosage: 1/MONTH
     Dates: start: 20060901

REACTIONS (3)
  - FOREIGN BODY SENSATION IN EYES [None]
  - PHOTOSENSITIVITY REACTION [None]
  - VITREOUS FLOATERS [None]
